FAERS Safety Report 8173634-9 (Version None)
Quarter: 2012Q1

REPORT INFORMATION
  Report Type: 
  Country: None (occurrence: None)
  Receive Date: 20120224
  Receipt Date: 20120209
  Transmission Date: 20120608
  Serious: Yes (Hospitalization)
  Sender: FDA-Public Use
  Company Number: US-2012-10131

PATIENT
  Age: 50 Year
  Sex: Male

DRUGS (8)
  1. ETOPOSIDE [Concomitant]
  2. CETIRIZINE (CETIRIZINE HYDROCHLORIDE) [Concomitant]
  3. BENADRYL [Concomitant]
  4. BUSULFAN [Suspect]
     Indication: LYMPHOMA
     Dosage: 61.3; 298 MG (DAILY DOSE, INTRAVENOUS
     Route: 042
     Dates: start: 20120104, end: 20120104
  5. BUSULFAN [Suspect]
     Indication: LYMPHOMA
     Dosage: 61.3; 298 MG (DAILY DOSE, INTRAVENOUS
     Route: 042
     Dates: start: 20120110, end: 20120113
  6. ACYCLOVIR [Concomitant]
  7. AMLODIPINE [Concomitant]
  8. CYCLOPHOSPHAMIDE [Concomitant]

REACTIONS (1)
  - CHOLECYSTITIS ACUTE [None]
